FAERS Safety Report 21476538 (Version 1)
Quarter: 2022Q4

REPORT INFORMATION
  Report Type: Spontaneous
  Country: CN (occurrence: CN)
  Receive Date: 20221019
  Receipt Date: 20221019
  Transmission Date: 20230113
  Serious: Yes (Other)
  Sender: FDA-Public Use
  Company Number: None

PATIENT
  Age: 17 Year
  Sex: Male
  Weight: 53.9 kg

DRUGS (7)
  1. CYCLOPHOSPHAMIDE [Suspect]
     Active Substance: CYCLOPHOSPHAMIDE
     Indication: Acute lymphocytic leukaemia
     Dosage: 1600 MG, INJECTION, QD, DILUTED WITH 0.9% SODIUM CHLORIDE (500 ML), ROUTE: INTRA-PUMP INJECTION
     Route: 050
     Dates: start: 20220908, end: 20220908
  2. SODIUM CHLORIDE [Suspect]
     Active Substance: SODIUM CHLORIDE
     Indication: Medication dilution
     Dosage: 500 ML, QD, DILUTED WITH CYCLOPHOSPHAMIDE (1600 MG), ROUTE: INTRA-PUMP INJECTION
     Route: 050
     Dates: start: 20220908, end: 20220908
  3. SODIUM CHLORIDE [Suspect]
     Active Substance: SODIUM CHLORIDE
     Dosage: 90 ML, QD, COMBINED WITH METHOTREXATE (10 MG) AND CYTARABINE HYDROCHLORIDE (35 MG)
     Route: 037
     Dates: start: 20220908, end: 20220908
  4. SODIUM CHLORIDE [Suspect]
     Active Substance: SODIUM CHLORIDE
     Dosage: 150 ML, ONCE/ 2 DAYS, DILUTED WITH CYTARABINE HYROCHLORIDE (80 MG)
     Route: 041
     Dates: start: 20220908, end: 20220914
  5. METHOTREXATE [Suspect]
     Active Substance: METHOTREXATE
     Indication: Acute lymphocytic leukaemia
     Dosage: 10 MG, QD, COMBINED WITH SODIUM CHLORIDE (90 ML) AND CYTARABINE HYDROCHLORIDE (35 MG)
     Route: 037
     Dates: start: 20220908, end: 20220908
  6. CYTARABINE HYDROCHLORIDE [Suspect]
     Active Substance: CYTARABINE HYDROCHLORIDE
     Indication: Acute lymphocytic leukaemia
     Dosage: 35 MG, QD, COMBINED WITH METHOTREXATE (10 MG) AND SODIUM CHLORIDE (90 ML)
     Route: 037
     Dates: start: 20220908, end: 20220908
  7. CYTARABINE HYDROCHLORIDE [Suspect]
     Active Substance: CYTARABINE HYDROCHLORIDE
     Dosage: 80 MG, ONCE/2 DAYS, DILUTED WITH 0.9% SODIUM CHLORIDE (150 ML)
     Route: 041
     Dates: start: 20220908, end: 20220914

REACTIONS (1)
  - Myelosuppression [Recovering/Resolving]

NARRATIVE: CASE EVENT DATE: 20220923
